FAERS Safety Report 7141262-X (Version None)
Quarter: 2010Q4

REPORT INFORMATION
  Report Type: 
  Country: None (occurrence: None)
  Receive Date: 20101207
  Receipt Date: 20101129
  Transmission Date: 20110411
  Serious: Yes (Life-Threatening, Hospitalization, Other)
  Sender: FDA-Public Use
  Company Number: JP-PFIZER INC-2010132850

PATIENT
  Age: 79 Year
  Sex: Male
  Weight: 56 kg

DRUGS (9)
  1. LYRICA [Suspect]
     Indication: FACIAL PAIN
     Dosage: 50 MG, 1X/DAY
     Route: 048
     Dates: start: 20100913, end: 20101014
  2. PANALDINE [Suspect]
     Indication: CEREBRAL INFARCTION
     Dosage: UNK 2X/DAY
     Route: 048
  3. ASPIRIN [Suspect]
     Indication: CEREBRAL INFARCTION
     Dosage: 100 MG, 1X/DAY
     Route: 048
  4. MAGNESIUM OXIDE [Concomitant]
  5. ZANTAC [Concomitant]
  6. DEPROMEL [Concomitant]
  7. NIVADIL [Concomitant]
  8. URSO 250 [Concomitant]
  9. FRANDOL [Concomitant]

REACTIONS (4)
  - CEREBRAL HAEMORRHAGE [None]
  - HAEMATOCRIT DECREASED [None]
  - HAEMOGLOBIN DECREASED [None]
  - HYPERTENSION [None]
